FAERS Safety Report 9946846 (Version 1)
Quarter: 2014Q1

REPORT INFORMATION
  Report Type: Report from Study
  Country: US (occurrence: US)
  Receive Date: 20140303
  Receipt Date: 20140303
  Transmission Date: 20141002
  Serious: No
  Sender: FDA-Public Use
  Company Number: US-ABBVIE-13P-163-1059636-00

PATIENT
  Age: 47 Year
  Sex: Female

DRUGS (5)
  1. HUMIRA [Suspect]
     Indication: PSORIASIS
     Dates: start: 20111007
  2. METFORMIN [Concomitant]
     Indication: DIABETES MELLITUS
     Dosage: 4 TABLETS DAILY
  3. LIPITOR [Concomitant]
     Indication: BLOOD CHOLESTEROL INCREASED
  4. ALLEGRA D [Concomitant]
     Indication: SEASONAL ALLERGY
     Dosage: DAILY
  5. ASA [Concomitant]
     Indication: PROPHYLAXIS

REACTIONS (1)
  - Hypertension [Recovered/Resolved]
